FAERS Safety Report 23466687 (Version 1)
Quarter: 2024Q1

REPORT INFORMATION
  Report Type: Spontaneous
  Country: FR (occurrence: FR)
  Receive Date: 20240201
  Receipt Date: 20240201
  Transmission Date: 20240410
  Serious: Yes (Hospitalization)
  Sender: FDA-Public Use
  Company Number: None

PATIENT
  Age: 60 Year
  Sex: Female
  Weight: 76.5 kg

DRUGS (8)
  1. DICLOFENAC SODIUM [Suspect]
     Active Substance: DICLOFENAC\DICLOFENAC SODIUM
     Indication: Tendonitis
     Dosage: DICLOFENAC SODIUM, LP 75 MG 1 TABLET MORNING AND EVENING FOR 10 DAYS/ DICLOFENAC SODIQUE
     Route: 048
     Dates: start: 20230918, end: 20230928
  2. ACETAMINOPHEN\OPIUM [Suspect]
     Active Substance: ACETAMINOPHEN\OPIUM
     Indication: Tendonitis
     Dosage: LAMALINE 340MG 3 TO 5 CAPSULES IF SEVERE PAIN PER DAY
     Route: 048
     Dates: start: 20230915, end: 20230918
  3. LYSOPAINE AMBROXOL [Concomitant]
     Indication: Product used for unknown indication
     Dosage: LYSOPAIN LEMON, 1 LOZENGE 3 TO 6X/DAY FOR 1 TO 3 DAYS/ LYSOPAINE SORE THROAT AMBROXOL LEMON, SUGA...
     Route: 048
     Dates: start: 20230915, end: 20230918
  4. ACETYLCYSTEINE\BENZALKONIUM CHLORIDE\TUAMINOHEPTANE SULFATE [Concomitant]
     Active Substance: ACETYLCYSTEINE\BENZALKONIUM CHLORIDE\TUAMINOHEPTANE SULFATE
     Indication: Product used for unknown indication
     Dosage: 10 ML 2 SPRAY 3 TO 4X/DAY FOR 3 TO 5 DAYS/ SOLUTION FOR NASAL SPRAY
     Route: 045
     Dates: start: 20230915, end: 20230920
  5. ACETYLCYSTEINE [Concomitant]
     Active Substance: ACETYLCYSTEINE
     Indication: Product used for unknown indication
     Dosage: ACETYLCYSTEINE   200MG 1 SACHET 3X/DAY FOR 5 TO 7 DAYS
     Route: 048
     Dates: start: 20230918, end: 20230924
  6. ACETYLCYSTEINE [Concomitant]
     Active Substance: ACETYLCYSTEINE
     Indication: Product used for unknown indication
     Dosage: ACETYLCYSTEINE   200MG 2 SACHETS IN THE MORNING FOR 5 DAYS/ ACETYLCYSTEINE BIOGARAN  200 MG, POWD...
     Route: 048
     Dates: start: 20230915, end: 20230918
  7. ESOMEPRAZOLE SODIUM [Suspect]
     Active Substance: ESOMEPRAZOLE SODIUM
     Indication: Prophylaxis against gastrointestinal ulcer
     Dosage: ESOMEPRAZOLE 20 MG 1 TAB EVERY EVENING
     Route: 048
     Dates: start: 20230918, end: 20230928
  8. ACETAMINOPHEN\OPIUM [Suspect]
     Active Substance: ACETAMINOPHEN\OPIUM
     Indication: Tendonitis
     Dosage: IZALGI 500MG/25MG 1 CAPSULE 3 TO 4X/DAY, 1 BOX IF SEVERE PAIN/ 500 MG/25 MG, CAPSULE
     Route: 048
     Dates: start: 20230918, end: 20230922

REACTIONS (2)
  - Pancreatitis acute [Recovering/Resolving]
  - Hepatitis acute [Recovering/Resolving]

NARRATIVE: CASE EVENT DATE: 20230928
